FAERS Safety Report 9235055 (Version 1)
Quarter: 2013Q2

REPORT INFORMATION
  Report Type: Spontaneous
  Country: IN (occurrence: IN)
  Receive Date: 20130416
  Receipt Date: 20130416
  Transmission Date: 20140414
  Serious: Yes (Death, Hospitalization)
  Sender: FDA-Public Use
  Company Number: IN-BAXTER-2013BAX013498

PATIENT
  Sex: Male

DRUGS (1)
  1. SODIUM CHLORIDE (0.45% W/V) AND DEXTROSE (5% W/V) INJECTION IP [Suspect]
     Indication: PRODUCT USED FOR UNKNOWN INDICATION
     Route: 065

REACTIONS (2)
  - Chills [Unknown]
  - Death [Fatal]
